FAERS Safety Report 4825649-3 (Version None)
Quarter: 2005Q4

REPORT INFORMATION
  Report Type: 
  Country: None (occurrence: None)
  Receive Date: 20051111
  Receipt Date: 20051027
  Transmission Date: 20060501
  Serious: Yes (Hospitalization)
  Sender: FDA-Public Use
  Company Number: AU-AVENTIS-200519514GDDC

PATIENT
  Sex: Male
  Weight: 85 kg

DRUGS (8)
  1. DOCETAXEL [Suspect]
     Indication: GASTROOESOPHAGEAL CANCER
     Route: 042
     Dates: start: 20051019, end: 20051019
  2. CISPLATIN [Suspect]
     Indication: GASTROOESOPHAGEAL CANCER
     Route: 042
     Dates: start: 20051019, end: 20051019
  3. FLUOROURACIL [Suspect]
     Indication: GASTROOESOPHAGEAL CANCER
     Route: 042
     Dates: start: 20051020
  4. GENTAMICIN [Concomitant]
     Indication: ADVERSE EVENT
     Route: 042
     Dates: start: 20051026, end: 20051026
  5. CEFTRIAXONE [Concomitant]
     Indication: ADVERSE EVENT
     Route: 042
     Dates: start: 20051026, end: 20051027
  6. PARIET [Concomitant]
     Route: 048
     Dates: start: 20050101
  7. SODIUM BICARBONATE [Concomitant]
     Dosage: DOSE: 150 ML 8.4% SODIUM BICARBONATE IN 1 LITER OF 5% DEXTROSE
     Route: 042
     Dates: start: 20051026, end: 20051026
  8. RED BLOOD CELLS [Concomitant]
     Dosage: DOSE: 4 UNITS PACKED CELLS
     Route: 042
     Dates: start: 20051026, end: 20051028

REACTIONS (4)
  - GASTROINTESTINAL HAEMORRHAGE [None]
  - HAEMOGLOBIN DECREASED [None]
  - MELAENA [None]
  - SYNCOPE VASOVAGAL [None]
